FAERS Safety Report 8838183 (Version 4)
Quarter: 2012Q4

REPORT INFORMATION
  Report Type: 
  Country: CA (occurrence: CA)
  Receive Date: 20121012
  Receipt Date: 20121224
  Transmission Date: 20130627
  Serious: Yes (Other)
  Sender: FDA-Public Use
  Company Number: CA-BRISTOL-MYERS SQUIBB COMPANY-17019902

PATIENT
  Age: 75 Year
  Sex: Female

DRUGS (12)
  1. SPRYCEL [Suspect]
     Indication: CHRONIC MYELOID LEUKAEMIA
     Dosage: Inter-20Nov12
     Route: 048
     Dates: start: 20120915
  2. DOMPERIDONE [Concomitant]
  3. VENTOLIN [Concomitant]
  4. FLOVENT [Concomitant]
  5. FLONASE [Concomitant]
  6. LYRICA [Concomitant]
  7. BISOPROLOL [Concomitant]
  8. PLAVIX [Concomitant]
  9. CRESTOR [Concomitant]
  10. CALCIUM [Concomitant]
  11. ELAVIL [Concomitant]
  12. NASONEX [Concomitant]

REACTIONS (7)
  - Angina pectoris [Unknown]
  - Lung disorder [Unknown]
  - Cough [Unknown]
  - Feeling abnormal [Unknown]
  - Rash pruritic [Recovering/Resolving]
  - Fatigue [Unknown]
  - Mucosal inflammation [Unknown]
